FAERS Safety Report 16970542 (Version 3)
Quarter: 2021Q1

REPORT INFORMATION
  Report Type: Spontaneous
  Country: US (occurrence: US)
  Receive Date: 20191029
  Receipt Date: 20210322
  Transmission Date: 20210419
  Serious: Yes (Other)
  Sender: FDA-Public Use
  Company Number: US-PFIZER INC-2019465785

PATIENT
  Age: 56 Year
  Sex: Female
  Weight: 40.37 kg

DRUGS (3)
  1. PROAIR HFA [Concomitant]
     Active Substance: ALBUTEROL SULFATE
     Indication: CHRONIC OBSTRUCTIVE PULMONARY DISEASE
     Dosage: UNK
  2. SYMBICORT [Concomitant]
     Active Substance: BUDESONIDE\FORMOTEROL FUMARATE DIHYDRATE
     Indication: CHRONIC OBSTRUCTIVE PULMONARY DISEASE
     Dosage: UNK, [160/4.5 MCG]
  3. LYRICA [Suspect]
     Active Substance: PREGABALIN
     Indication: LIMB DISCOMFORT
     Dosage: 75 MG, 2X/DAY (75 MG; TAKES ONE IN MORNING AND ONE IN EVENING)
     Dates: start: 2017

REACTIONS (6)
  - Limb traumatic amputation [Unknown]
  - Off label use [Unknown]
  - Musculoskeletal stiffness [Unknown]
  - Therapeutic response unexpected [Unknown]
  - Gait disturbance [Unknown]
  - Hip fracture [Unknown]

NARRATIVE: CASE EVENT DATE: 2017
